FAERS Safety Report 24200225 (Version 4)
Quarter: 2024Q3

REPORT INFORMATION
  Report Type: Spontaneous
  Country: PT (occurrence: PT)
  Receive Date: 20240812
  Receipt Date: 20240909
  Transmission Date: 20241017
  Serious: Yes (Death, Life-Threatening, Hospitalization, Other)
  Sender: AUROBINDO
  Company Number: PT-LABALTER-202403650

PATIENT
  Age: 71 Year
  Sex: Female

DRUGS (5)
  1. CLOPIDOGREL [Interacting]
     Active Substance: CLOPIDOGREL BISULFATE
     Indication: Cardiac failure
     Dosage: 75 MILLIGRAM
     Route: 065
  2. FUROSEMIDE [Suspect]
     Active Substance: FUROSEMIDE
     Indication: Cardiac failure
     Dosage: UNK
     Route: 065
  3. DABIGATRAN [Suspect]
     Active Substance: DABIGATRAN
     Indication: Anticoagulant therapy
     Dosage: UNK
     Route: 065
  4. ENOXAPARIN [Interacting]
     Active Substance: ENOXAPARIN
     Indication: Cardiac failure
     Dosage: 1 MILLIGRAM/KILOGRAM, TWO TIMES A DAY 1 MG/KG 12/12 H
     Route: 065
  5. FUROSEMIDE [Concomitant]
     Active Substance: FUROSEMIDE
     Indication: Cardiac failure
     Dosage: UNKNOWN DOSAGE
     Route: 042

REACTIONS (14)
  - Abdominal wall haematoma [Fatal]
  - Intra-abdominal haematoma [Fatal]
  - Cardio-respiratory arrest [Fatal]
  - Septic shock [Fatal]
  - Sepsis [Fatal]
  - Haemoglobin decreased [Unknown]
  - Haematoma infection [Not Recovered/Not Resolved]
  - Intra-abdominal haemorrhage [Unknown]
  - Abdominal mass [Unknown]
  - Abdominal wall haemorrhage [Unknown]
  - Abdominal pain [Unknown]
  - Gait disturbance [Unknown]
  - Pyrexia [Unknown]
  - Drug interaction [Unknown]
